FAERS Safety Report 7072641-7 (Version None)
Quarter: 2010Q4

REPORT INFORMATION
  Report Type: 
  Country: None (occurrence: None)
  Receive Date: 20101029
  Receipt Date: 20100223
  Transmission Date: 20110411
  Serious: No
  Sender: FDA-Public Use
  Company Number: A0845945A

PATIENT
  Sex: Female

DRUGS (2)
  1. ADVAIR DISKUS 100/50 [Suspect]
     Indication: ASTHMA
     Dosage: 1PUFF PER DAY
     Route: 055
     Dates: start: 20100201, end: 20100220
  2. THYROID MEDICATION [Concomitant]

REACTIONS (4)
  - DRY MOUTH [None]
  - DYSPHONIA [None]
  - SPEECH DISORDER [None]
  - THROAT IRRITATION [None]
